FAERS Safety Report 17214263 (Version 4)
Quarter: 2022Q2

REPORT INFORMATION
  Report Type: Spontaneous
  Country: NL (occurrence: NL)
  Receive Date: 20191230
  Receipt Date: 20220429
  Transmission Date: 20220720
  Serious: Yes (Other)
  Sender: FDA-Public Use
  Company Number: NL-DALECO-2019-NL-000057

PATIENT
  Age: 44 Year
  Sex: Female

DRUGS (10)
  1. QUETIAPINE [Suspect]
     Active Substance: QUETIAPINE
     Indication: Product used for unknown indication
     Dosage: 1 TIME DAILY, 1 TABLET
     Dates: start: 2011
  2. TRANYLCYPROMINE SULFATE [Suspect]
     Active Substance: TRANYLCYPROMINE SULFATE
     Indication: Depression
     Dosage: TAKEN IN MORNING,1 TIME DAILY,3 TABLET
     Dates: start: 20160721
  3. ALPRAZOLAM [Concomitant]
     Active Substance: ALPRAZOLAM
     Indication: Product used for unknown indication
     Dosage: 0.5 MILLIGRAM, PRN (AS REQUIRED)
  4. CHOLECALCIFEROL [Concomitant]
     Active Substance: CHOLECALCIFEROL
     Indication: Product used for unknown indication
     Dosage: 1 TABLET WEEKLY
  5. HALOPERIDOL [Concomitant]
     Active Substance: HALOPERIDOL
     Indication: Product used for unknown indication
     Dosage: 1 TABLET, 1 TIME DAILY 2 TABLETS
  6. PANTOPRAZOLE SODIUM [Concomitant]
     Active Substance: PANTOPRAZOLE SODIUM
     Indication: Product used for unknown indication
     Dosage: 1 TIME DAILY, 1 TABLET
  7. DESOGESTREL [Concomitant]
     Active Substance: DESOGESTREL
     Indication: Product used for unknown indication
     Dosage: 2 DOSAGE FORM, QD(1 TIME DAILY, 2 TABLETS)
  8. PHENPROCOUMON [Concomitant]
     Active Substance: PHENPROCOUMON
     Indication: Product used for unknown indication
     Dosage: ACCORDING TO SCHEME THROMBOSIS SERVICE
  9. ZOPICLONE [Concomitant]
     Active Substance: ZOPICLONE
     Indication: Product used for unknown indication
     Dosage: 1 TIME DAILY, 1 TABLET
  10. LEVOTHYROXINE SODIUM [Concomitant]
     Active Substance: LEVOTHYROXINE SODIUM
     Dosage: 3.5 DOSAGE FORM, QD

REACTIONS (5)
  - Hypertensive crisis [Recovered/Resolved]
  - Hypertension [Recovered/Resolved]
  - Contraindicated product administered [Not Recovered/Not Resolved]
  - Labelled drug-food interaction medication error [Unknown]
  - Diet noncompliance [Unknown]

NARRATIVE: CASE EVENT DATE: 20180101
